FAERS Safety Report 15400314 (Version 1)
Quarter: 2018Q3

REPORT INFORMATION
  Report Type: Spontaneous
  Country: US (occurrence: US)
  Receive Date: 20180919
  Receipt Date: 20180919
  Transmission Date: 20181010
  Serious: No
  Sender: FDA-Public Use
  Company Number: US-BIOGEN-2018BI00615813

PATIENT
  Sex: Female

DRUGS (1)
  1. AVONEX [Suspect]
     Active Substance: INTERFERON BETA-1A
     Indication: MULTIPLE SCLEROSIS
     Dosage: INJECT 30 MCG INTRAMUSCULARLY ONCE WEEKLY
     Route: 030

REACTIONS (6)
  - Injection site mass [Not Recovered/Not Resolved]
  - Bacterial infection [Recovered/Resolved]
  - Injection site swelling [Unknown]
  - Muscular weakness [Unknown]
  - Injection site pain [Unknown]
  - Injection site reaction [Unknown]
